FAERS Safety Report 5873418-8 (Version None)
Quarter: 2008Q3

REPORT INFORMATION
  Report Type: 
  Country: None (occurrence: None)
  Receive Date: 20080908
  Receipt Date: 20080711
  Transmission Date: 20090109
  Serious: No
  Sender: FDA-Public Use
  Company Number: US-BAYER-200828677NA

PATIENT
  Sex: Female

DRUGS (1)
  1. MIRENA [Suspect]
     Indication: CONTRACEPTION
     Route: 015
     Dates: start: 20080401, end: 20080703

REACTIONS (4)
  - ACNE [None]
  - ALOPECIA [None]
  - DYSPAREUNIA [None]
  - VAGINAL HAEMORRHAGE [None]
